FAERS Safety Report 10330804 (Version 1)
Quarter: 2014Q3

REPORT INFORMATION
  Report Type: Report from Study
  Country: CO (occurrence: None)
  Receive Date: 20140718
  Receipt Date: 20140718
  Transmission Date: 20150326
  Serious: Yes (Death)
  Sender: FDA-Public Use
  Company Number: 2014-19963

PATIENT
  Age: 88 Year
  Sex: Male

DRUGS (3)
  1. AMITRIPTYLINE [Concomitant]
     Active Substance: AMITRIPTYLINE
  2. EYLEA [Suspect]
     Active Substance: AFLIBERCEPT
     Indication: AGE-RELATED MACULAR DEGENERATION
     Route: 031
     Dates: start: 20130613
  3. TRAMADOL [Suspect]
     Active Substance: TRAMADOL

REACTIONS (5)
  - Neoplasm malignant [None]
  - Discomfort [None]
  - Fatigue [None]
  - Musculoskeletal disorder [None]
  - Haemoptysis [None]

NARRATIVE: CASE EVENT DATE: 20130701
